FAERS Safety Report 4292558-0 (Version None)
Quarter: 2004Q1

REPORT INFORMATION
  Report Type: 
  Country: None (occurrence: None)
  Receive Date: 20040210
  Receipt Date: 20040127
  Transmission Date: 20041129
  Serious: Yes (Death, Hospitalization, Other)
  Sender: FDA-Public Use
  Company Number: 200410161US

PATIENT
  Age: 42 Year
  Sex: Male
  Weight: 61 kg

DRUGS (9)
  1. ANZEMET [Suspect]
     Dosage: 100 MG ONCE IV
     Route: 042
     Dates: start: 20030818, end: 20030818
  2. ANZEMET [Suspect]
     Dosage: 100 MG ONCE IV
     Route: 042
     Dates: start: 20040102, end: 20040102
  3. ANZEMET [Suspect]
     Dosage: 100 MG ONCE IV
     Route: 042
     Dates: start: 20040106, end: 20040106
  4. HEPARIN SODIUM (HEPARIN FLUSH) [Concomitant]
  5. DECADRON [Concomitant]
  6. LASIX [Concomitant]
  7. ATROPINE [Concomitant]
  8. IRINOTECAN [Concomitant]
  9. FLUOROURACIL [Concomitant]

REACTIONS (2)
  - DYSPNOEA [None]
  - PLATELET COUNT DECREASED [None]
